FAERS Safety Report 4550798-7 (Version None)
Quarter: 2005Q1

REPORT INFORMATION
  Report Type: 
  Country: None (occurrence: None)
  Receive Date: 20050112
  Receipt Date: 20041101
  Transmission Date: 20050727
  Serious: Yes (Death)
  Sender: FDA-Public Use
  Company Number: US-MERCK-0411USA00258

PATIENT
  Age: 44 Year
  Sex: Male

DRUGS (2)
  1. VIOXX [Suspect]
     Indication: ARTHRITIS
     Route: 048
     Dates: end: 20031201
  2. [THERAPY UNSPECIFIED] [Concomitant]
     Route: 065

REACTIONS (5)
  - DIABETES MELLITUS INADEQUATE CONTROL [None]
  - DIABETES MELLITUS INSULIN-DEPENDENT [None]
  - DROWNING [None]
  - ROAD TRAFFIC ACCIDENT [None]
  - VENTRICULAR DYSFUNCTION [None]
